FAERS Safety Report 13913229 (Version 1)
Quarter: 2017Q3

REPORT INFORMATION
  Report Type: Spontaneous
  Country: US (occurrence: US)
  Receive Date: 20170828
  Receipt Date: 20170828
  Transmission Date: 20171127
  Serious: No
  Sender: FDA-Public Use
  Company Number: US-ROCHE-1127322

PATIENT
  Sex: Female

DRUGS (11)
  1. AMITRIPTYLINE [Concomitant]
     Active Substance: AMITRIPTYLINE
  2. TOPAMAX [Concomitant]
     Active Substance: TOPIRAMATE
  3. ROBAXIN [Concomitant]
     Active Substance: METHOCARBAMOL
  4. MAXALT [Concomitant]
     Active Substance: RIZATRIPTAN BENZOATE
  5. NEURONTIN [Concomitant]
     Active Substance: GABAPENTIN
     Route: 065
  6. NUTROPIN AQ [Suspect]
     Active Substance: SOMATROPIN
     Indication: GROWTH HORMONE DEFICIENCY
     Route: 058
     Dates: start: 199912
  7. HYDROCHLOROTHIAZIDE. [Concomitant]
     Active Substance: HYDROCHLOROTHIAZIDE
  8. VIOXX [Concomitant]
     Active Substance: ROFECOXIB
  9. AMANTADINE. [Concomitant]
     Active Substance: AMANTADINE HYDROCHLORIDE
  10. EFFEXOR [Concomitant]
     Active Substance: VENLAFAXINE HYDROCHLORIDE
  11. PREGNENOLONE [Concomitant]
     Active Substance: PREGNENOLONE

REACTIONS (2)
  - Carpal tunnel syndrome [Unknown]
  - Swelling [Unknown]
